FAERS Safety Report 10272424 (Version 1)
Quarter: 2014Q1

REPORT INFORMATION
  Report Type: Spontaneous
  Country: US (occurrence: None)
  Receive Date: 20140306
  Receipt Date: 20140306
  Transmission Date: 20141002
  Serious: Yes (Other)
  Sender: FDA-Public Use
  Company Number: 163-21880-13043190

PATIENT
  Age: 58 Year
  Sex: Female
  Weight: 46.7 kg

DRUGS (8)
  1. REVLIMID (LENALIDOMIDE) (25 MILLIGRAM, CAPSULES) [Suspect]
     Indication: PLASMA CELL MYELOMA
     Dosage: 25 MG, 21 IN 28 D, PO
     Route: 048
     Dates: start: 20130204
  2. XANAX (ALPRAZOLAM) (TABLETS) [Concomitant]
  3. DEXAMETHASONE (DEXAMETHASONE) (TABLETS) [Concomitant]
  4. ZOMETA (ZOLEDRONIC ACID) (INJECTION) [Concomitant]
  5. FENTANYL (FENTANYL) (POULTICE OR PATCH) [Concomitant]
  6. LORTAB (VICODINE) (TABLETS) [Concomitant]
  7. PHENERGAN (PROMETHAZINE) [Concomitant]
  8. BENADRYL (DIPHENHYDRAMINE HYDROCHLORIDE) [Concomitant]

REACTIONS (8)
  - Protein total decreased [None]
  - Full blood count decreased [None]
  - Blister [None]
  - Skin exfoliation [None]
  - Dizziness [None]
  - Decreased appetite [None]
  - Infection [None]
  - Pruritus [None]
